FAERS Safety Report 14896334 (Version 1)
Quarter: 2018Q2

REPORT INFORMATION
  Report Type: Spontaneous
  Country: US (occurrence: US)
  Receive Date: 20180427
  Receipt Date: 20180427
  Transmission Date: 20180711
  Serious: No
  Sender: FDA-Public Use
  Company Number: None

PATIENT
  Age: 25 Year
  Sex: Male

DRUGS (22)
  1. MOVANTIK [Concomitant]
     Active Substance: NALOXEGOL OXALATE
  2. PLAQUENIL [Concomitant]
     Active Substance: HYDROXYCHLOROQUINE SULFATE
  3. TRAZODONE [Concomitant]
     Active Substance: TRAZODONE HYDROCHLORIDE
  4. ONDANSETRON [Concomitant]
     Active Substance: ONDANSETRON
  5. BACLOFEN. [Concomitant]
     Active Substance: BACLOFEN
  6. ZANTAC [Concomitant]
     Active Substance: RANITIDINE HYDROCHLORIDE
  7. NAPROXEN. [Concomitant]
     Active Substance: NAPROXEN
  8. VIMPAT [Concomitant]
     Active Substance: LACOSAMIDE
  9. HUMIRA [Suspect]
     Active Substance: ADALIMUMAB
     Indication: PSORIATIC ARTHROPATHY
     Route: 058
     Dates: start: 20180207, end: 20180427
  10. ALPRAZOLAM. [Concomitant]
     Active Substance: ALPRAZOLAM
  11. FOLIC ACID. [Concomitant]
     Active Substance: FOLIC ACID
  12. SENOKOT [Concomitant]
     Active Substance: SENNOSIDES
  13. LACTOBACCILUS [Concomitant]
  14. BUSPAR [Concomitant]
     Active Substance: BUSPIRONE HYDROCHLORIDE
  15. PROTONIX [Concomitant]
     Active Substance: PANTOPRAZOLE SODIUM
  16. HYDROCODONE [Concomitant]
     Active Substance: HYDROCODONE
  17. BUTRANS [Concomitant]
     Active Substance: BUPRENORPHINE
  18. SERTRALINE [Concomitant]
     Active Substance: SERTRALINE HYDROCHLORIDE
  19. VITAMIN D [Concomitant]
     Active Substance: CHOLECALCIFEROL
  20. NITROFURANTOIN. [Concomitant]
     Active Substance: NITROFURANTOIN
  21. DEPAKOTE [Concomitant]
     Active Substance: DIVALPROEX SODIUM
  22. SINGULAIR [Concomitant]
     Active Substance: MONTELUKAST SODIUM

REACTIONS (1)
  - Enterococcal infection [None]

NARRATIVE: CASE EVENT DATE: 20180427
